FAERS Safety Report 5146785-0 (Version None)
Quarter: 2006Q4

REPORT INFORMATION
  Report Type: 
  Country: None (occurrence: None)
  Receive Date: 20061107
  Receipt Date: 20061107
  Transmission Date: 20070319
  Serious: Yes (Hospitalization)
  Sender: FDA-Public Use
  Company Number: None

PATIENT
  Age: 53 Year
  Sex: Male
  Weight: 75.8 kg

DRUGS (18)
  1. IODIXANOL 320 MGL/ML AMERSHAM HEALTH [Suspect]
     Indication: ANGIOGRAM
     Dosage: 150ML ONCE IV BOLUS
     Route: 040
     Dates: start: 20060413, end: 20060413
  2. IODIXANOL 320 MGL/ML AMERSHAM HEALTH [Suspect]
     Indication: ARTERIOGRAM
     Dosage: 150ML ONCE IV BOLUS
     Route: 040
     Dates: start: 20060413, end: 20060413
  3. GADODIAMIDE 287 MG/ML AMERSHAM HEALTH [Suspect]
     Indication: ANGIOPLASTY
     Dosage: 15-20ML ONCE IV BOLUS
     Route: 040
     Dates: start: 20060413, end: 20060413
  4. ESOMEPRAZOLE MAGNESIUM [Concomitant]
  5. FOLIC ACID [Concomitant]
  6. INSULIN GLARGINE [Concomitant]
  7. CLOPIDOGREL [Concomitant]
  8. PREDNISOLONE [Concomitant]
  9. ATORVASTATIN CALCIUM [Concomitant]
  10. TACROLIMUS [Concomitant]
  11. MYCOPHENOLATE MOFETIL [Concomitant]
  12. CALCIUM CITRATE [Concomitant]
  13. CLONIDINE [Concomitant]
  14. ISOSORBIDE DINITRATE [Concomitant]
  15. PROPRANOLOL [Concomitant]
  16. METOCLOPRAMIDE [Concomitant]
  17. LISINOPRIL [Concomitant]
  18. METOPROLOL [Concomitant]

REACTIONS (1)
  - BLOOD CREATININE INCREASED [None]
